FAERS Safety Report 24577929 (Version 1)
Quarter: 2024Q4

REPORT INFORMATION
  Report Type: Spontaneous
  Country: US (occurrence: US)
  Receive Date: 20241104
  Receipt Date: 20241104
  Transmission Date: 20250115
  Serious: No
  Sender: AMGEN
  Company Number: US-AMGEN-USASP2024215945

PATIENT
  Age: 16 Year
  Sex: Female

DRUGS (2)
  1. RAVICTI [Suspect]
     Active Substance: GLYCEROL PHENYLBUTYRATE
     Indication: Arginase deficiency
     Dosage: 3 MILLILITER, TID, (PACKAGING SIZE: 1.1GM/ML) ROUTE OF ADMINISTRATION: BY MOUTH OR VIA G-TUBE
     Route: 048
     Dates: start: 202407
  2. RAVICTI [Suspect]
     Active Substance: GLYCEROL PHENYLBUTYRATE
     Indication: Urea cycle disorder

REACTIONS (1)
  - Anger [Unknown]

NARRATIVE: CASE EVENT DATE: 20240101
